FAERS Safety Report 7023579-2 (Version None)
Quarter: 2010Q3

REPORT INFORMATION
  Report Type: 
  Country: None (occurrence: None)
  Receive Date: 20100930
  Receipt Date: 20100922
  Transmission Date: 20110219
  Serious: Yes (Other)
  Sender: FDA-Public Use
  Company Number: US-AMGEN-QUU440501

PATIENT
  Sex: Female

DRUGS (4)
  1. NPLATE [Suspect]
     Indication: THROMBOCYTOPENIA
     Dates: start: 20100101, end: 20100430
  2. CORTICOSTEROIDS [Concomitant]
     Dates: start: 20080301, end: 20080301
  3. IMMU-G [Concomitant]
     Dates: start: 20080501, end: 20080501
  4. INTERFERON [Concomitant]
     Dates: start: 19950101, end: 19950101

REACTIONS (1)
  - HEPATITIS C [None]
